FAERS Safety Report 16303033 (Version 2)
Quarter: 2020Q4

REPORT INFORMATION
  Report Type: Spontaneous
  Country: US (occurrence: US)
  Receive Date: 20190513
  Receipt Date: 20201208
  Transmission Date: 20210113
  Serious: Yes (Hospitalization, Disabling, Other)
  Sender: FDA-Public Use
  Company Number: US-ASTRAZENECA-2019SE63713

PATIENT
  Age: 16744 Day
  Sex: Male
  Weight: 99.8 kg

DRUGS (83)
  1. BISACODYL. [Concomitant]
     Active Substance: BISACODYL
  2. DULOXETINE HCL [Concomitant]
     Active Substance: DULOXETINE HYDROCHLORIDE
  3. ONDANSETRON HCL [Concomitant]
     Active Substance: ONDANSETRON HYDROCHLORIDE
  4. HYDRALAZINE HCL [Concomitant]
     Active Substance: HYDRALAZINE HYDROCHLORIDE
  5. NORCO [Concomitant]
     Active Substance: ACETAMINOPHEN\HYDROCODONE BITARTRATE
  6. BENZONATATE. [Concomitant]
     Active Substance: BENZONATATE
  7. METHYLPREDNISOLONE. [Concomitant]
     Active Substance: METHYLPREDNISOLONE
  8. TRIAMCINOLON [Concomitant]
  9. ZYCLARA [Concomitant]
     Active Substance: IMIQUIMOD
  10. NEXIUM [Suspect]
     Active Substance: ESOMEPRAZOLE MAGNESIUM
     Indication: GASTROOESOPHAGEAL REFLUX DISEASE
     Route: 048
     Dates: start: 200002, end: 200002
  11. NEXIUM 24HR [Suspect]
     Active Substance: ESOMEPRAZOLE MAGNESIUM
     Indication: GASTROOESOPHAGEAL REFLUX DISEASE
     Route: 048
     Dates: start: 2015
  12. PRILOSEC [Suspect]
     Active Substance: OMEPRAZOLE MAGNESIUM
     Indication: GASTROOESOPHAGEAL REFLUX DISEASE
     Route: 048
     Dates: start: 1994, end: 2001
  13. GABAPENTIN. [Concomitant]
     Active Substance: GABAPENTIN
     Indication: PAIN
     Dates: start: 201804, end: 2019
  14. MAGNESIUM OXIDE. [Concomitant]
     Active Substance: MAGNESIUM OXIDE
  15. AMLODIPINE BESYLATE. [Concomitant]
     Active Substance: AMLODIPINE BESYLATE
  16. MILK OF MAGNESIA [Concomitant]
     Active Substance: MAGNESIUM HYDROXIDE
  17. FISH OIL [Concomitant]
     Active Substance: FISH OIL
  18. INTERFERON [Concomitant]
     Active Substance: INTERFERON
  19. DEMADEX [Concomitant]
     Active Substance: TORSEMIDE
  20. NAFTIN [Concomitant]
     Active Substance: NAFTIFINE HYDROCHLORIDE
  21. BACTROBAN [Concomitant]
     Active Substance: MUPIROCIN\MUPIROCIN CALCIUM
  22. EFFEXOR [Concomitant]
     Active Substance: VENLAFAXINE HYDROCHLORIDE
  23. PROTONIX [Suspect]
     Active Substance: PANTOPRAZOLE SODIUM
     Indication: GASTROOESOPHAGEAL REFLUX DISEASE
     Route: 065
     Dates: start: 20100908, end: 2011
  24. PROTONIX [Suspect]
     Active Substance: PANTOPRAZOLE SODIUM
     Indication: GASTROOESOPHAGEAL REFLUX DISEASE
     Dosage: GENERIC
     Route: 065
     Dates: start: 2011
  25. METHOCARBAMOL. [Concomitant]
     Active Substance: METHOCARBAMOL
  26. ALUMINIUM [Concomitant]
     Active Substance: ALUMINUM
  27. LIDOCAINE. [Concomitant]
     Active Substance: LIDOCAINE
  28. CEFTIN [Concomitant]
     Active Substance: CEFUROXIME AXETIL
  29. KETOCONAZOLE. [Concomitant]
     Active Substance: KETOCONAZOLE
  30. DOXAZOSIN [Concomitant]
     Active Substance: DOXAZOSIN MESYLATE
  31. DEXAMETHANOSONE [Concomitant]
  32. CALCIUM ACETATE. [Concomitant]
     Active Substance: CALCIUM ACETATE
  33. MOVIPREP [Concomitant]
     Active Substance: ASCORBIC ACID\POLYETHYLENE GLYCOL 3350\POTASSIUM CHLORIDE\SODIUM ASCORBATE\SODIUM CHLORIDE\SODIUM SULFATE
  34. MAG-AL- PLUS [Concomitant]
  35. MAALOX ANTACID [Concomitant]
     Active Substance: ALUMINUM HYDROXIDE\DIMETHICONE\MAGNESIUM HYDROXIDE
  36. POLYETHYLENE GLYCOL [Concomitant]
     Active Substance: POLYETHYLENE GLYCOLS
  37. AMBIEN [Concomitant]
     Active Substance: ZOLPIDEM TARTRATE
  38. NITROSTAT [Concomitant]
     Active Substance: NITROGLYCERIN
  39. METOPROLOL. [Concomitant]
     Active Substance: METOPROLOL
     Indication: HYPERTENSION
     Dates: start: 2010
  40. AMOXICILLIN. [Concomitant]
     Active Substance: AMOXICILLIN
     Dates: start: 20140904, end: 20151021
  41. ZANTAC [Concomitant]
     Active Substance: RANITIDINE HYDROCHLORIDE
     Dates: start: 1999, end: 2000
  42. PEPCID [Concomitant]
     Active Substance: FAMOTIDINE
     Dates: start: 1993, end: 1997
  43. ATENOLOL. [Concomitant]
     Active Substance: ATENOLOL
  44. HYDRALAZINE [Concomitant]
     Active Substance: HYDRALAZINE HYDROCHLORIDE
  45. CODEINE /ACETAMINOPHEN [Concomitant]
  46. PNEUMOVAX 23 [Concomitant]
     Active Substance: PNEUMOCOCCAL VACCINE, POLYVALENT 23
  47. ROBITUSSIN (GUAIFENESIN) [Concomitant]
     Active Substance: GUAIFENESIN
  48. ONDANSETRON [Concomitant]
     Active Substance: ONDANSETRON
  49. XARELTO [Concomitant]
     Active Substance: RIVAROXABAN
  50. COUMADIN [Concomitant]
     Active Substance: WARFARIN SODIUM
  51. SYSTANE (HYPROMELLOSE 2910 (4000 MPA.S)) [Concomitant]
     Active Substance: HYPROMELLOSE 2910 (4000 MPA.S)
  52. PRILOSEC OTC [Suspect]
     Active Substance: OMEPRAZOLE MAGNESIUM
     Route: 048
     Dates: start: 200002, end: 200002
  53. PROTONIX [Suspect]
     Active Substance: PANTOPRAZOLE SODIUM
     Indication: GASTROOESOPHAGEAL REFLUX DISEASE
     Route: 065
     Dates: start: 200002, end: 200002
  54. AMLODIPINE [Concomitant]
     Active Substance: AMLODIPINE BESYLATE
     Indication: HYPERTENSION
     Dates: start: 2010, end: 2019
  55. FUROSEMIDE. [Concomitant]
     Active Substance: FUROSEMIDE
     Indication: FLUID RETENTION
     Dates: start: 2010
  56. PEPTO-BISMOL [Concomitant]
     Active Substance: BISMUTH SUBSALICYLATE
  57. CITALOPRAM HYDROBROMIDE. [Concomitant]
     Active Substance: CITALOPRAM HYDROBROMIDE
  58. METOPROLOL TARTRATE. [Concomitant]
     Active Substance: METOPROLOL TARTRATE
  59. CHOLECALCIFEROL [Concomitant]
     Active Substance: CHOLECALCIFEROL
  60. CATAPRES [Concomitant]
     Active Substance: CLONIDINE HYDROCHLORIDE
  61. LABETALOL [Concomitant]
     Active Substance: LABETALOL\LABETALOL HYDROCHLORIDE
  62. NEURO [Concomitant]
  63. SODIUM CHLORIDE. [Concomitant]
     Active Substance: SODIUM CHLORIDE
  64. OMNICEF [Concomitant]
     Active Substance: CEFDINIR
  65. VALTREX [Concomitant]
     Active Substance: VALACYCLOVIR HYDROCHLORIDE
  66. TYLENOL [Concomitant]
     Active Substance: ACETAMINOPHEN
     Indication: PAIN
     Dates: start: 2000, end: 2019
  67. TOPROL XL [Concomitant]
     Active Substance: METOPROLOL SUCCINATE
  68. LISINOPRIL HCTZ [Concomitant]
     Active Substance: HYDROCHLOROTHIAZIDE\LISINOPRIL
  69. MORPHINE SULFATE. [Concomitant]
     Active Substance: MORPHINE SULFATE
  70. TAMSULOSIN HCL [Concomitant]
     Active Substance: TAMSULOSIN HYDROCHLORIDE
  71. DILAUDID [Concomitant]
     Active Substance: HYDROMORPHONE HYDROCHLORIDE
  72. ATROPINE SULFATE. [Concomitant]
     Active Substance: ATROPINE SULFATE
  73. LISINOPRIL. [Concomitant]
     Active Substance: LISINOPRIL
     Indication: HYPERTENSION
     Dates: start: 2010
  74. ALKA-SELTZER [Concomitant]
     Active Substance: ANHYDROUS CITRIC ACID\ASPIRIN\SODIUM BICARBONATE
  75. ALBUTEROL. [Concomitant]
     Active Substance: ALBUTEROL
  76. AUGMENTIN [Concomitant]
     Active Substance: AMOXICILLIN\CLAVULANATE POTASSIUM
  77. ATIVAN [Concomitant]
     Active Substance: LORAZEPAM
  78. MULTIVITAMINS [Concomitant]
     Active Substance: VITAMINS
  79. VICODIN [Concomitant]
     Active Substance: ACETAMINOPHEN\HYDROCODONE BITARTRATE
  80. DUONEB [Concomitant]
     Active Substance: ALBUTEROL SULFATE\IPRATROPIUM BROMIDE
  81. DOCUSATE SODIUM. [Concomitant]
     Active Substance: DOCUSATE SODIUM
  82. PRADAXA [Concomitant]
     Active Substance: DABIGATRAN ETEXILATE MESYLATE
  83. PLAVIX [Concomitant]
     Active Substance: CLOPIDOGREL BISULFATE

REACTIONS (6)
  - Chronic kidney disease [Not Recovered/Not Resolved]
  - Acute kidney injury [Not Recovered/Not Resolved]
  - Renal failure [Unknown]
  - Nephrogenic anaemia [Unknown]
  - End stage renal disease [Not Recovered/Not Resolved]
  - Gastrooesophageal reflux disease [Not Recovered/Not Resolved]

NARRATIVE: CASE EVENT DATE: 20100909
